FAERS Safety Report 6105212-7 (Version None)
Quarter: 2009Q1

REPORT INFORMATION
  Report Type: 
  Country: None (occurrence: None)
  Receive Date: 20090306
  Receipt Date: 20090203
  Transmission Date: 20090719
  Serious: No
  Sender: FDA-Public Use
  Company Number: US-BAYER-200910392BCC

PATIENT
  Age: 38 Year
  Sex: Female
  Weight: 86 kg

DRUGS (1)
  1. MIDOL [Suspect]
     Indication: MENSTRUAL DISORDER
     Dosage: TOTAL DAILY DOSE: 220 MG  UNIT DOSE: 220 MG
     Dates: start: 20090202, end: 20090202

REACTIONS (1)
  - WHEEZING [None]
